FAERS Safety Report 8308439 (Version 2)
Quarter: 2012Q4

REPORT INFORMATION
  Report Type: 
  Country: US (occurrence: US)
  Receive Date: 20111222
  Receipt Date: 20121214
  Transmission Date: 20130627
  Serious: No
  Sender: FDA-Public Use
  Company Number: US-GLAXOSMITHKLINE-A0922874A

PATIENT
  Age: 68 Year
  Sex: Male

DRUGS (3)
  1. AVODART [Suspect]
     Indication: PROSTATITIS
     Dosage: .5MG Per day
     Route: 048
     Dates: start: 20110330, end: 201104
  2. WARFARIN [Concomitant]
  3. VYTORIN [Concomitant]

REACTIONS (11)
  - Breast enlargement [Recovering/Resolving]
  - Nipple disorder [Recovering/Resolving]
  - Sexual dysfunction [Recovering/Resolving]
  - Prostatic specific antigen increased [Recovering/Resolving]
  - Performance status decreased [Recovering/Resolving]
  - Libido disorder [Recovering/Resolving]
  - Breast tenderness [Recovering/Resolving]
  - Nipple pain [Recovering/Resolving]
  - Benign prostatic hyperplasia [Unknown]
  - Prostatomegaly [Unknown]
  - Urinary retention [Unknown]
